FAERS Safety Report 13153258 (Version 1)
Quarter: 2017Q1

REPORT INFORMATION
  Report Type: Spontaneous
  Country: US (occurrence: US)
  Receive Date: 20170126
  Receipt Date: 20170126
  Transmission Date: 20170428
  Serious: Yes (Life-Threatening, Hospitalization, Other)
  Sender: FDA-Public Use
  Company Number: PHHY2017US007541

PATIENT
  Age: 34 Year
  Sex: Male

DRUGS (1)
  1. CARISOPRODOL. [Suspect]
     Active Substance: CARISOPRODOL
     Indication: PRODUCT USED FOR UNKNOWN INDICATION
     Dosage: 7.5 G, ONCE/SINGLE
     Route: 048

REACTIONS (10)
  - Overdose [Unknown]
  - Seizure like phenomena [Recovered/Resolved]
  - Sinus tachycardia [Unknown]
  - Respiratory distress [Recovering/Resolving]
  - Delusion [Recovering/Resolving]
  - Drug dependence [Unknown]
  - Paranoia [Recovering/Resolving]
  - Agitation [Recovering/Resolving]
  - Drug withdrawal syndrome [Recovering/Resolving]
  - Drug abuse [Recovering/Resolving]
